FAERS Safety Report 5056082-X (Version None)
Quarter: 2006Q3

REPORT INFORMATION
  Report Type: 
  Country: None (occurrence: None)
  Receive Date: 20060717
  Receipt Date: 20060711
  Transmission Date: 20061208
  Serious: Yes (Hospitalization)
  Sender: FDA-Public Use
  Company Number: 146004USA

PATIENT
  Age: 54 Year
  Sex: Female
  Weight: 83.0083 kg

DRUGS (4)
  1. FAMOTIDINE [Suspect]
     Dosage: 20 MILLIGRAM
  2. VERSED [Suspect]
     Dates: start: 19911121, end: 19911121
  3. PRAVACHOL [Concomitant]
  4. TRIAMTERENE AND HYDROCHLOROTHIAZIDE [Concomitant]

REACTIONS (5)
  - CARDIAC ARREST [None]
  - EPISTAXIS [None]
  - HYPERTENSION [None]
  - MYOCARDIAL INFARCTION [None]
  - STRESS [None]
